FAERS Safety Report 6764325-7 (Version None)
Quarter: 2010Q2

REPORT INFORMATION
  Report Type: 
  Country: None (occurrence: None)
  Receive Date: 20100610
  Receipt Date: 20100601
  Transmission Date: 20101027
  Serious: Yes (Other)
  Sender: FDA-Public Use
  Company Number: US-WYE-H12825510

PATIENT
  Sex: Female
  Weight: 59.02 kg

DRUGS (5)
  1. PRISTIQ [Suspect]
     Indication: DEPRESSION
     Route: 048
     Dates: start: 20090609, end: 20090615
  2. MIRAPEX ^PHARMACIA-UPJOHN^ [Concomitant]
     Dosage: 1.0 MG
  3. NEXIUM [Concomitant]
     Dosage: UNKNOWN
  4. SIMVASTATIN [Concomitant]
     Dosage: 40 MG
  5. KAPIDEX [Concomitant]
     Dosage: UNKNOWN

REACTIONS (6)
  - BLOOD PRESSURE INCREASED [None]
  - DIZZINESS [None]
  - FALL [None]
  - FRACTURE [None]
  - MALAISE [None]
  - VOMITING [None]
